FAERS Safety Report 5787209-X (Version None)
Quarter: 2008Q2

REPORT INFORMATION
  Report Type: 
  Country: None (occurrence: None)
  Receive Date: 20080618
  Receipt Date: 20080609
  Transmission Date: 20081010
  Serious: Yes (Hospitalization)
  Sender: FDA-Public Use
  Company Number: 235454J08USA

PATIENT
  Age: 52 Year
  Sex: Female
  Weight: 66.2252 kg

DRUGS (5)
  1. REBIF [Suspect]
     Indication: MULTIPLE SCLEROSIS
     Dosage: 44 MCG, 3 IN 1 WEEKS, SUBCUTANEOUS
     Route: 058
     Dates: start: 20060307
  2. VICODIN [Concomitant]
  3. NASONEX [Concomitant]
  4. LEXAPRO [Concomitant]
  5. INDERAL (PROPRANOL HYDROCHLORIDE) [Concomitant]

REACTIONS (4)
  - CARDIOMYOPATHY [None]
  - DYSPNOEA EXERTIONAL [None]
  - EJECTION FRACTION DECREASED [None]
  - PERICARDIAL EFFUSION [None]
